FAERS Safety Report 9551957 (Version 2)
Quarter: 2014Q1

REPORT INFORMATION
  Report Type: Spontaneous
  Country: US (occurrence: None)
  Receive Date: 20130923
  Receipt Date: 20140129
  Transmission Date: 20141002
  Serious: Yes (Other)
  Sender: FDA-Public Use
  Company Number: 2013US0362

PATIENT
  Age: 10 Year
  Sex: Female

DRUGS (6)
  1. KINERET [Suspect]
     Indication: JUVENILE IDIOPATHIC ARTHRITIS
     Dosage: 200 MG, 1 IN 1 D, SUBCUTANEOUS?
     Route: 058
     Dates: start: 20130515, end: 20130528
  2. KINERET [Suspect]
     Indication: ARTHRITIS
     Dosage: 200 MG, 1 IN 1 D, SUBCUTANEOUS?
     Route: 058
     Dates: start: 20130515, end: 20130528
  3. PREDNISONE (PREDNISONE) (PREDNISONE) [Concomitant]
  4. VYVANSE (LISDEXAMFETAMINE MESILATE) (LISDEXAMFETAMINE MESILATE) [Concomitant]
  5. METHOTREXATE (METHOTREXATE) (METHOTREXATE) [Concomitant]
  6. CANAKINUMAB [Suspect]
     Dates: end: 20130531

REACTIONS (4)
  - Hepatocellular injury [None]
  - Hepatitis [None]
  - Cholelithiasis [None]
  - Histiocytosis haematophagic [None]
